FAERS Safety Report 15880349 (Version 1)
Quarter: 2019Q1

REPORT INFORMATION
  Report Type: Spontaneous
  Country: GB (occurrence: GB)
  Receive Date: 20190128
  Receipt Date: 20190128
  Transmission Date: 20190417
  Serious: Yes (Death, Life-Threatening, Other)
  Sender: FDA-Public Use
  Company Number: GB-HIKMA PHARMACEUTICALS USA INC.-GB-H14001-19-00453

PATIENT
  Age: 80 Year
  Sex: Male

DRUGS (5)
  1. METHYLPREDNISOLONE. [Suspect]
     Active Substance: METHYLPREDNISOLONE
     Indication: OPTIC NEURITIS
     Dosage: PULSED
     Route: 065
  2. CYCLOPHOSPHAMIDE. [Suspect]
     Active Substance: CYCLOPHOSPHAMIDE
     Indication: OPTIC NEURITIS
     Route: 042
  3. PREDNISOLONE. [Suspect]
     Active Substance: PREDNISOLONE
     Indication: OPTIC NEURITIS
     Route: 048
  4. SALBUTAMOL [Concomitant]
     Active Substance: ALBUTEROL
     Indication: ASTHMA
     Dosage: SALBUTAMOL INHALER ()
     Route: 055
  5. PREDNISOLONE. [Suspect]
     Active Substance: PREDNISOLONE
     Indication: OPTIC NEURITIS
     Route: 048

REACTIONS (11)
  - Facial paresis [Unknown]
  - Cerebral aspergillosis [Fatal]
  - Ophthalmoplegia [Unknown]
  - Blindness [Unknown]
  - Ataxia [Unknown]
  - Paraesthesia [Unknown]
  - Dysarthria [Unknown]
  - Urinary incontinence [Unknown]
  - Cognitive disorder [Unknown]
  - Somnolence [Unknown]
  - Disease progression [Fatal]
